FAERS Safety Report 14088944 (Version 3)
Quarter: 2018Q1

REPORT INFORMATION
  Report Type: Spontaneous
  Country: JP (occurrence: JP)
  Receive Date: 20171013
  Receipt Date: 20180302
  Transmission Date: 20180508
  Serious: Yes (Other)
  Sender: FDA-Public Use
  Company Number: JP-MYLANLABS-2017M1062472

PATIENT
  Age: 46 Year
  Sex: Female
  Weight: 50 kg

DRUGS (15)
  1. EPIRUBICIN HYDROCHLORIDE INJ. 10MG ^NK^ [Suspect]
     Active Substance: EPIRUBICIN HYDROCHLORIDE
     Indication: BREAST CANCER
     Dosage: 150 MG, CYCLE
     Route: 042
     Dates: start: 20160108, end: 20160318
  2. ENDOXAN                            /00021101/ [Suspect]
     Active Substance: CYCLOPHOSPHAMIDE
     Indication: BREAST CANCER
     Dosage: 750 MG, CYCLE
     Route: 042
     Dates: start: 20160108, end: 20160318
  3. TAXOTERE [Suspect]
     Active Substance: DOCETAXEL
     Indication: BREAST CANCER
     Dosage: 115 MG, CYCLE
     Route: 042
     Dates: start: 20160408, end: 20160624
  4. ALOXI [Concomitant]
     Active Substance: PALONOSETRON HYDROCHLORIDE
     Indication: ANTIEMETIC SUPPORTIVE CARE
     Dosage: 0.75 MG, CYCLE
     Route: 042
     Dates: start: 20160108, end: 20160318
  5. ACETAMINOPHEN. [Concomitant]
     Active Substance: ACETAMINOPHEN
     Indication: PAIN
     Dosage: 500 MG, PRN
     Route: 048
     Dates: start: 20151218, end: 20160624
  6. METOCLOPRAMIDE. [Concomitant]
     Active Substance: METOCLOPRAMIDE
     Indication: ANTIEMETIC SUPPORTIVE CARE
     Dosage: 5 MG, TID
     Route: 048
     Dates: start: 20160624, end: 20160630
  7. DECADRON [Concomitant]
     Active Substance: DEXAMETHASONE
     Dosage: 8 MG, CYCLE
     Route: 042
     Dates: start: 20160108, end: 20160318
  8. BROTIZOLAM [Concomitant]
     Active Substance: BROTIZOLAM
     Indication: INSOMNIA
     Dosage: 0.25 MG, QD
     Route: 048
     Dates: start: 20160121, end: 20160218
  9. EMEND [Concomitant]
     Active Substance: APREPITANT
     Indication: ANTIEMETIC SUPPORTIVE CARE
     Dosage: 80 MG, CYCLE
     Route: 048
     Dates: start: 20160108, end: 20160318
  10. PERAPRIN [Concomitant]
     Active Substance: METOCLOPRAMIDE
     Indication: ANTIEMETIC SUPPORTIVE CARE
     Dosage: 5 MG, PRN
     Route: 048
     Dates: start: 20160108, end: 20160624
  11. GRANISETRON [Concomitant]
     Active Substance: GRANISETRON
     Indication: ANTIEMETIC SUPPORTIVE CARE
     Dosage: 3 MG, CYCLE
     Route: 042
     Dates: start: 20160408, end: 20160624
  12. 5-FU KYOWA [Suspect]
     Active Substance: FLUOROURACIL
     Indication: BREAST CANCER
     Dosage: 750 MG, CYCLE
     Route: 042
     Dates: start: 20160108, end: 20160318
  13. DECADRON [Concomitant]
     Active Substance: DEXAMETHASONE
     Indication: BREAST CANCER
     Dosage: 12 MG, CYCLE
     Route: 042
     Dates: start: 20160108, end: 20160318
  14. EMEND [Concomitant]
     Active Substance: APREPITANT
     Dosage: 125 MG, CYCLE
     Route: 048
     Dates: start: 20160108, end: 20160318
  15. DECADRON [Concomitant]
     Active Substance: DEXAMETHASONE
     Indication: BREAST CANCER
     Dosage: 4 MG, CYCLE
     Route: 048
     Dates: start: 20160108, end: 20160624

REACTIONS (6)
  - Nausea [Recovered/Resolved]
  - Paronychia [Recovered/Resolved]
  - Vomiting [Recovered/Resolved]
  - Malaise [Recovered/Resolved]
  - Hypoaesthesia [Recovered/Resolved]
  - Palmar-plantar erythrodysaesthesia syndrome [Recovered/Resolved]

NARRATIVE: CASE EVENT DATE: 20160115
